FAERS Safety Report 23727810 (Version 5)
Quarter: 2024Q3

REPORT INFORMATION
  Report Type: Spontaneous
  Country: US (occurrence: US)
  Receive Date: 20240410
  Receipt Date: 20240724
  Transmission Date: 20241017
  Serious: No
  Sender: BIOVITRUM
  Company Number: US-BIOVITRUM-2024-US-005420

PATIENT
  Age: 77 Year
  Sex: Male

DRUGS (2)
  1. VONJO [Suspect]
     Active Substance: PACRITINIB
     Indication: Myelofibrosis
     Dosage: TWICE DAILY
     Route: 048
     Dates: start: 20240229
  2. VONJO [Suspect]
     Active Substance: PACRITINIB
     Dosage: TWICE DAILY
     Route: 048
     Dates: start: 20240322

REACTIONS (12)
  - Diarrhoea [Unknown]
  - Asthenia [Unknown]
  - Full blood count abnormal [Unknown]
  - Product dose omission in error [Unknown]
  - Anaemia [Unknown]
  - Dyspepsia [Unknown]
  - Ageusia [Unknown]
  - Rhinorrhoea [Unknown]
  - Secretion discharge [Unknown]
  - Haemoglobin abnormal [Unknown]
  - Haematocrit abnormal [Unknown]
  - Abdominal discomfort [Unknown]
